FAERS Safety Report 5083600-8 (Version None)
Quarter: 2006Q3

REPORT INFORMATION
  Report Type: 
  Country: None (occurrence: None)
  Receive Date: 20060818
  Receipt Date: 20060803
  Transmission Date: 20061208
  Serious: Yes (Death, Life-Threatening)
  Sender: FDA-Public Use
  Company Number: JP-JPN-A200602964

PATIENT
  Age: 59 Year
  Sex: Male

DRUGS (6)
  1. PAXIL [Suspect]
     Indication: DEPRESSION
     Dosage: 10MG PER DAY
     Route: 048
     Dates: start: 20060724, end: 20060701
  2. GRANDAXIN [Concomitant]
     Route: 048
  3. OMEPRAZOLE [Concomitant]
     Dosage: 10MG PER DAY
     Route: 048
  4. URSO [Concomitant]
     Indication: HEPATIC STEATOSIS
     Dosage: 600MG PER DAY
     Route: 048
  5. HALCION [Concomitant]
     Indication: INSOMNIA
     Dosage: .25MG PER DAY
     Route: 048
     Dates: start: 20060629
  6. UNKNOWN DRUG [Concomitant]
     Indication: FEELING COLD
     Route: 065
     Dates: start: 20060720, end: 20060724

REACTIONS (1)
  - COMPLETED SUICIDE [None]
